FAERS Safety Report 11637791 (Version 1)
Quarter: 2015Q4

REPORT INFORMATION
  Report Type: Spontaneous
  Country: RU (occurrence: RU)
  Receive Date: 20151016
  Receipt Date: 20151016
  Transmission Date: 20160304
  Serious: Yes (Other)
  Sender: FDA-Public Use
  Company Number: RU-PFIZER INC-2015336375

PATIENT
  Age: 33 Year
  Sex: Female

DRUGS (1)
  1. DOSTINEX [Suspect]
     Active Substance: CABERGOLINE
     Indication: LACTATION INHIBITION THERAPY
     Dosage: 1/2 TABLET, 2X/DAY FOR 2 DAYS
     Route: 048
     Dates: start: 201508, end: 201508

REACTIONS (2)
  - Urticaria [Recovered/Resolved]
  - Face oedema [Recovered/Resolved]

NARRATIVE: CASE EVENT DATE: 201508
